FAERS Safety Report 8578812-2 (Version None)
Quarter: 2012Q3

REPORT INFORMATION
  Report Type: 
  Country: None (occurrence: None)
  Receive Date: 20120801
  Receipt Date: 20120801
  Transmission Date: 20120928
  Serious: No
  Sender: FDA-Public Use
  Company Number: None

PATIENT
  Age: 37 Year
  Sex: Female

DRUGS (1)
  1. TRETINOIN [Suspect]

REACTIONS (3)
  - PRODUCT EXPIRATION DATE ISSUE [None]
  - PRODUCT LABEL COUNTERFEIT [None]
  - PRODUCT PACKAGING COUNTERFEIT [None]
